FAERS Safety Report 5066820-8 (Version None)
Quarter: 2006Q3

REPORT INFORMATION
  Report Type: 
  Country: None (occurrence: None)
  Receive Date: 20060726
  Receipt Date: 20060710
  Transmission Date: 20061208
  Serious: Yes (Hospitalization, Other)
  Sender: FDA-Public Use
  Company Number: PAR_0688_2006

PATIENT
  Age: 74 Year
  Sex: Male

DRUGS (4)
  1. CAPOTEN [Suspect]
     Indication: CARDIAC FAILURE
     Dosage: 6.25 MG TID PO
     Route: 048
     Dates: start: 20060410, end: 20060505
  2. LASIX [Concomitant]
  3. NITRAKET [Concomitant]
  4. ACETYLSALICYLIC ACID SRT [Concomitant]

REACTIONS (2)
  - HEPATITIS CHOLESTATIC [None]
  - TOXIC SKIN ERUPTION [None]
